FAERS Safety Report 4595583-5 (Version None)
Quarter: 2005Q1

REPORT INFORMATION
  Report Type: 
  Country: None (occurrence: None)
  Receive Date: 20050228
  Receipt Date: 20050228
  Transmission Date: 20050727
  Serious: No
  Sender: FDA-Public Use
  Company Number: None

PATIENT

DRUGS (2)
  1. PROZAC [Suspect]
     Indication: ANXIETY
     Dosage: 10 MG QD
  2. PROZAC [Suspect]
     Indication: DEPRESSION
     Dosage: 10 MG QD

REACTIONS (2)
  - DRUG INEFFECTIVE [None]
  - PHARMACEUTICAL PRODUCT COMPLAINT [None]
